FAERS Safety Report 8283123-9 (Version None)
Quarter: 2012Q2

REPORT INFORMATION
  Report Type: 
  Country: None (occurrence: None)
  Receive Date: 20120413
  Receipt Date: 20120405
  Transmission Date: 20120825
  Serious: Yes (Death, Hospitalization)
  Sender: FDA-Public Use
  Company Number: US-GLAXOSMITHKLINE-A0967411A

PATIENT
  Age: 58 Year
  Sex: Female
  Weight: 69.4 kg

DRUGS (18)
  1. LASIX [Concomitant]
     Dosage: 40MG PER DAY
     Route: 048
  2. SPIRONOLACTONE [Concomitant]
     Dosage: 25MG PER DAY
     Route: 048
  3. FISH OIL [Concomitant]
  4. MULTI-VITAMIN [Concomitant]
  5. TYLENOL (CAPLET) [Concomitant]
     Dosage: 650MG AS REQUIRED
  6. PROTONIX [Concomitant]
  7. FLOLAN [Suspect]
     Indication: PULMONARY ARTERIAL HYPERTENSION
     Dosage: 7.94NGKM SEE DOSAGE TEXT
     Route: 042
     Dates: start: 20120120
  8. CLONIDINE [Concomitant]
  9. DIGOXIN [Concomitant]
     Dosage: 125MCG PER DAY
     Route: 048
  10. SYMBICORT [Concomitant]
     Dosage: 2PUFF TWICE PER DAY
  11. METOPROLOL TARTRATE [Concomitant]
     Dosage: 50MG TWICE PER DAY
     Route: 048
  12. SINGULAIR [Concomitant]
     Dosage: 10MG AT NIGHT
     Route: 048
  13. LISINOPRIL [Concomitant]
     Dosage: 5MG PER DAY
     Route: 048
  14. DAPSONE [Concomitant]
     Dosage: 100MG PER DAY
     Route: 048
  15. ATENOLOL [Concomitant]
  16. PREDNISONE TAB [Concomitant]
     Dosage: 10MG PER DAY
     Route: 048
  17. ALBUTEROL [Concomitant]
  18. COMBIVENT [Concomitant]
     Route: 055

REACTIONS (33)
  - NAUSEA [None]
  - DIARRHOEA [None]
  - GASTROOESOPHAGEAL REFLUX DISEASE [None]
  - RHINORRHOEA [None]
  - CARDIAC FAILURE [None]
  - DRUG INEFFECTIVE [None]
  - RALES [None]
  - DEHYDRATION [None]
  - REGURGITATION [None]
  - OEDEMA PERIPHERAL [None]
  - FATIGUE [None]
  - PULMONARY HYPERTENSION [None]
  - DYSPNOEA [None]
  - RESPIRATORY TRACT CONGESTION [None]
  - ILL-DEFINED DISORDER [None]
  - DYSKINESIA OESOPHAGEAL [None]
  - WHEEZING [None]
  - COUGH [None]
  - RENAL FAILURE ACUTE [None]
  - MICTURITION FREQUENCY DECREASED [None]
  - DIZZINESS POSTURAL [None]
  - PAIN IN EXTREMITY [None]
  - RIGHT VENTRICULAR FAILURE [None]
  - THROMBOCYTOPENIA [None]
  - ACIDOSIS [None]
  - ASTHENIA [None]
  - PLEURAL EFFUSION [None]
  - RENAL FAILURE [None]
  - VOMITING [None]
  - PANCYTOPENIA [None]
  - DYSPNOEA EXERTIONAL [None]
  - HYPOGLYCAEMIA [None]
  - JUGULAR VEIN DISTENSION [None]
